FAERS Safety Report 15081854 (Version 1)
Quarter: 2018Q2

REPORT INFORMATION
  Report Type: Spontaneous
  Country: FR (occurrence: FR)
  Receive Date: 20180628
  Receipt Date: 20180628
  Transmission Date: 20180711
  Serious: Yes (Hospitalization)
  Sender: FDA-Public Use
  Company Number: FR-CONCORDIA PHARMACEUTICALS INC.-E2B_00013066

PATIENT
  Age: 60 Year
  Sex: Male

DRUGS (8)
  1. AERIUS [Suspect]
     Active Substance: DESLORATADINE
     Indication: NASOPHARYNGITIS
     Dosage: INCONNUE
     Route: 048
     Dates: start: 20180113, end: 20180113
  2. PREDNISOLONE. [Suspect]
     Active Substance: PREDNISOLONE
     Indication: NASOPHARYNGITIS
     Dosage: INCONNUE
     Route: 048
     Dates: start: 20180113, end: 20180113
  3. AMAREL 1 MG, COMPRIM? [Concomitant]
     Route: 048
  4. PERMIXON [Concomitant]
     Active Substance: HERBALS\SAW PALMETTO
     Dosage: INCONNUE
     Route: 048
  5. EXFORGE [Concomitant]
     Active Substance: AMLODIPINE BESYLATE\VALSARTAN
     Route: 048
  6. TAHOR [Concomitant]
     Active Substance: ATORVASTATIN CALCIUM
     Route: 048
  7. ASPIRINE [Concomitant]
     Active Substance: ASPIRIN
     Route: 048
  8. AUGMENTIN [Suspect]
     Active Substance: AMOXICILLIN\CLAVULANATE POTASSIUM
     Indication: NASOPHARYNGITIS
     Dosage: INCONNUE
     Route: 048
     Dates: start: 20180113, end: 20180113

REACTIONS (3)
  - Pruritus [Recovered/Resolved]
  - Drug hypersensitivity [Recovered/Resolved]
  - Generalised erythema [Recovered/Resolved]

NARRATIVE: CASE EVENT DATE: 20180113
